FAERS Safety Report 4870540-X (Version None)
Quarter: 2005Q4

REPORT INFORMATION
  Report Type: 
  Country: None (occurrence: None)
  Receive Date: 20051228
  Receipt Date: 20051213
  Transmission Date: 20060501
  Serious: Yes (Other)
  Sender: FDA-Public Use
  Company Number: 2005-BP-21417RO

PATIENT
  Age: 25 Year
  Sex: Female

DRUGS (11)
  1. CYCLOPHOSPHAMIDE [Suspect]
     Indication: SYSTEMIC LUPUS ERYTHEMATOSUS
     Dosage: 250 MG/M2 DURING WEEK 22 (SEE TEXT)
  2. MESNA [Suspect]
     Indication: SYSTEMIC LUPUS ERYTHEMATOSUS
     Dosage: IV
     Route: 042
  3. METHYLPREDNISOLONE [Concomitant]
  4. PREDNISONE [Concomitant]
  5. HYDROCHLOROQUINE (HYDROCHLOROQUINE) [Concomitant]
  6. ASPIRIN [Concomitant]
  7. AZATHIOPRINE [Concomitant]
  8. LABETALOL HCL [Concomitant]
  9. FUROSEMIDE [Concomitant]
  10. FLUTICASONE PROPIONATE [Concomitant]
  11. SALMETEROL (SALMETEROL) [Concomitant]

REACTIONS (5)
  - DRUG EXPOSURE DURING PREGNANCY [None]
  - GLOMERULONEPHRITIS PROLIFERATIVE [None]
  - INTRA-UTERINE DEATH [None]
  - MICROANGIOPATHIC HAEMOLYTIC ANAEMIA [None]
  - THROMBOCYTOPENIA [None]
